FAERS Safety Report 5836272-6 (Version None)
Quarter: 2008Q3

REPORT INFORMATION
  Report Type: 
  Country: None (occurrence: None)
  Receive Date: 20080807
  Receipt Date: 20080805
  Transmission Date: 20090109
  Serious: Yes (Hospitalization)
  Sender: FDA-Public Use
  Company Number: US-BRISTOL-MYERS SQUIBB COMPANY-14289862

PATIENT
  Age: 73 Year
  Sex: Female
  Weight: 57 kg

DRUGS (3)
  1. CARBOPLATIN [Suspect]
     Indication: METASTATIC NEOPLASM
     Dosage: CARBOPLATIN 45 AUC.
     Dates: start: 20080512, end: 20080512
  2. TAXOL [Suspect]
     Indication: METASTATIC NEOPLASM
     Dosage: 150 MG/M2 STRENGTH TAKEN.
     Dates: start: 20080512, end: 20080512
  3. ETOPOSIDE [Suspect]
     Indication: METASTATIC NEOPLASM
     Route: 048
     Dates: start: 20080521

REACTIONS (5)
  - ASTHENIA [None]
  - COUGH [None]
  - DUODENAL ULCER [None]
  - OESOPHAGEAL CANDIDIASIS [None]
  - PANCYTOPENIA [None]
